FAERS Safety Report 17265359 (Version 1)
Quarter: 2020Q1

REPORT INFORMATION
  Report Type: Spontaneous
  Country: MX (occurrence: MX)
  Receive Date: 20200114
  Receipt Date: 20200114
  Transmission Date: 20200409
  Serious: No
  Sender: FDA-Public Use
  Company Number: MX-LUPIN PHARMACEUTICALS INC.-2019-04727

PATIENT
  Sex: Female
  Weight: 10.9 kg

DRUGS (5)
  1. OMNICEF R 250MG/5ML SUSPENSION [Suspect]
     Active Substance: CEFDINIR
     Indication: COUGH
  2. TOBRADEX [Concomitant]
     Active Substance: DEXAMETHASONE\TOBRAMYCIN
     Indication: CONJUNCTIVITIS
     Dosage: 4 GTT DROPS, TID 2 DROPS INTO EACH EYE FOR 5 DAYS
     Route: 047
  3. CHAMOMILE EYE CREAM [Concomitant]
     Indication: CONJUNCTIVITIS
     Dosage: FOR 5 DAYS BEFORE ADMINISTRATION OF TOBRADEX
     Route: 047
  4. DIMEGAN-D [LORATADINE;PHENYLEPHRINE HYDROCHLORIDE] [Concomitant]
     Indication: COUGH
     Dosage: 2.5 MILLILITER, BID FOR 5 DAYS
     Route: 048
  5. OMNICEF R 250MG/5ML SUSPENSION [Suspect]
     Active Substance: CEFDINIR
     Indication: CONJUNCTIVITIS
     Dosage: 250 MG/5 ML EVERY 24 HOURS DURING 7 DAYS
     Route: 048

REACTIONS (2)
  - Faeces discoloured [Unknown]
  - Eating disorder [Unknown]

NARRATIVE: CASE EVENT DATE: 20190715
